FAERS Safety Report 5084237-7 (Version None)
Quarter: 2006Q3

REPORT INFORMATION
  Report Type: 
  Country: None (occurrence: None)
  Receive Date: 20060821
  Receipt Date: 20060306
  Transmission Date: 20061208
  Serious: No
  Sender: FDA-Public Use
  Company Number: US-BRISTOL-MYERS SQUIBB COMPANY-13304209

PATIENT
  Age: 24 Year
  Sex: Female
  Weight: 54 kg

DRUGS (1)
  1. TEQUIN [Suspect]
     Indication: URINARY TRACT INFECTION
     Dates: start: 20060303, end: 20060303

REACTIONS (5)
  - DISSOCIATION [None]
  - HALLUCINATION, VISUAL [None]
  - IRRITABILITY [None]
  - SWOLLEN TONGUE [None]
  - TREMOR [None]
